FAERS Safety Report 6885221-0 (Version None)
Quarter: 2010Q3

REPORT INFORMATION
  Report Type: 
  Country: None (occurrence: None)
  Receive Date: 20100729
  Receipt Date: 20100723
  Transmission Date: 20110219
  Serious: Yes (Hospitalization, Other)
  Sender: FDA-Public Use
  Company Number: US-AMGEN-QUU418230

PATIENT
  Sex: Female
  Weight: 59 kg

DRUGS (12)
  1. ARANESP [Suspect]
     Indication: RENAL FAILURE CHRONIC
     Route: 058
     Dates: start: 20081205, end: 20100511
  2. ATENOLOL [Concomitant]
  3. PREMARIN [Concomitant]
  4. CALCITRIOL [Concomitant]
  5. LAMICTAL [Concomitant]
  6. SYNTHROID [Concomitant]
  7. LASIX [Concomitant]
  8. MULTI-VITAMINS [Concomitant]
  9. LOMOTIL [Concomitant]
  10. PRILOSEC [Concomitant]
  11. BOTOX [Concomitant]
  12. HYOSCYAMINE SULFATE [Concomitant]

REACTIONS (17)
  - ASTHENIA [None]
  - BLOOD CALCIUM DECREASED [None]
  - BLOOD PARATHYROID HORMONE INCREASED [None]
  - CONVULSION [None]
  - DYSPHAGIA [None]
  - FALL [None]
  - FATIGUE [None]
  - HAEMOGLOBIN DECREASED [None]
  - HYPOMAGNESAEMIA [None]
  - HYPOTENSION [None]
  - LOSS OF CONSCIOUSNESS [None]
  - MUSCLE SPASMS [None]
  - OEDEMA PERIPHERAL [None]
  - RENAL FAILURE ACUTE [None]
  - SYNCOPE [None]
  - UPPER RESPIRATORY TRACT CONGESTION [None]
  - WEIGHT DECREASED [None]
